FAERS Safety Report 25677710 (Version 2)
Quarter: 2025Q3

REPORT INFORMATION
  Report Type: Spontaneous
  Country: IN (occurrence: IN)
  Receive Date: 20250813
  Receipt Date: 20250908
  Transmission Date: 20251021
  Serious: Yes (Other)
  Sender: AMERICAN REGENT
  Company Number: IN-AMERICAN REGENT INC-2025003129

PATIENT
  Age: 39 Year
  Sex: Female

DRUGS (2)
  1. FERINJECT [Suspect]
     Active Substance: FERRIC CARBOXYMALTOSE
     Indication: Anaemia
     Route: 065
     Dates: start: 20250718
  2. FERINJECT [Suspect]
     Active Substance: FERRIC CARBOXYMALTOSE
     Indication: Haemorrhage
     Route: 065
     Dates: start: 2025

REACTIONS (11)
  - Serum ferritin increased [Unknown]
  - Emotional distress [Unknown]
  - Iron overload [Unknown]
  - Discomfort [Unknown]
  - Economic problem [Unknown]
  - Asthenia [Unknown]
  - Dizziness [Unknown]
  - Hypotension [Unknown]
  - Abdominal discomfort [Unknown]
  - Nausea [Unknown]
  - Product prescribing issue [Unknown]

NARRATIVE: CASE EVENT DATE: 20250701
